FAERS Safety Report 5009142-3 (Version None)
Quarter: 2006Q2

REPORT INFORMATION
  Report Type: 
  Country: None (occurrence: None)
  Receive Date: 20060519
  Receipt Date: 20060511
  Transmission Date: 20061013
  Serious: Yes (Hospitalization, Other)
  Sender: FDA-Public Use
  Company Number: 8-99172-080A

PATIENT
  Age: 59 Year
  Sex: Male

DRUGS (8)
  1. CORDARONE [Suspect]
     Indication: VENTRICULAR TACHYCARDIA
     Dosage: SEE IMAGE
  2. CORDARONE [Suspect]
     Indication: VENTRICULAR TACHYCARDIA
     Dosage: SEE IMAGE
     Route: 048
  3. FUROSEMIDE [Concomitant]
  4. LISINOPRIL [Concomitant]
  5. WARFARIN (WARFARIN) [Concomitant]
  6. FUROSEMIDE [Concomitant]
  7. DOPAMINE HCL [Concomitant]
  8. DOBUTAMINE (DOBUTAMINE) [Concomitant]

REACTIONS (13)
  - BLOOD PRESSURE DIASTOLIC DECREASED [None]
  - CARDIAC FAILURE CONGESTIVE [None]
  - CARDIAC MURMUR [None]
  - HAEMOPTYSIS [None]
  - HYPOXIA [None]
  - LEUKOCYTOSIS [None]
  - LUNG INFILTRATION [None]
  - MITRAL VALVE INCOMPETENCE [None]
  - PLATYPNOEA [None]
  - PULMONARY ALVEOLAR HAEMORRHAGE [None]
  - PULMONARY TOXICITY [None]
  - RALES [None]
  - VENTRICULAR TACHYCARDIA [None]
